FAERS Safety Report 21253907 (Version 1)
Quarter: 2022Q3

REPORT INFORMATION
  Report Type: Report from Study
  Country: US (occurrence: None)
  Receive Date: 20220825
  Receipt Date: 20220825
  Transmission Date: 20221027
  Serious: Yes (Other)
  Sender: FDA-Public Use
  Company Number: US-Merck Healthcare KGaA-9344969

PATIENT
  Age: 67 Year
  Sex: Female

DRUGS (1)
  1. REBIF [Suspect]
     Active Substance: INTERFERON BETA-1A
     Indication: Multiple sclerosis
     Route: 058
     Dates: start: 2004

REACTIONS (4)
  - Squamous cell carcinoma [Unknown]
  - Cutaneous calcification [Unknown]
  - Impaired healing [Not Recovered/Not Resolved]
  - Wrong technique in product usage process [Unknown]
